FAERS Safety Report 15181287 (Version 8)
Quarter: 2020Q2

REPORT INFORMATION
  Report Type: Spontaneous
  Country: US (occurrence: US)
  Receive Date: 20180723
  Receipt Date: 20200519
  Transmission Date: 20200713
  Serious: Yes (Hospitalization)
  Sender: FDA-Public Use
  Company Number: US-SA-2018SA198915

PATIENT
  Age: 21 Year
  Sex: Male

DRUGS (2)
  1. DUPIXENT [Suspect]
     Active Substance: DUPILUMAB
     Dosage: 300 MG, QOW
     Route: 058
     Dates: start: 201712
  2. DUPIXENT [Suspect]
     Active Substance: DUPILUMAB
     Indication: DERMATITIS CONTACT
     Dosage: 600 MG, 1X
     Route: 058
     Dates: start: 201712, end: 201712

REACTIONS (7)
  - Hospitalisation [Unknown]
  - Dry eye [Recovered/Resolved]
  - Inappropriate schedule of product administration [Unknown]
  - Influenza [Unknown]
  - Joint injury [Unknown]
  - Skin abrasion [Unknown]
  - Product dose omission [Unknown]

NARRATIVE: CASE EVENT DATE: 20180806
